FAERS Safety Report 25584442 (Version 1)
Quarter: 2025Q3

REPORT INFORMATION
  Report Type: Spontaneous
  Country: EU (occurrence: EU)
  Receive Date: 20250721
  Receipt Date: 20250721
  Transmission Date: 20251020
  Serious: Yes (Hospitalization)
  Sender: CHEPLAPHARM
  Company Number: EU-ROCHE-2288640

PATIENT
  Age: 24 Year
  Sex: Female
  Weight: 56 kg

DRUGS (16)
  1. CAPECITABINE [Suspect]
     Active Substance: CAPECITABINE
     Indication: Triple negative breast cancer
     Dosage: MOST RECENT DOSE OF CAPECITABINE (3200 MG) ADMINISTERED PRIOR TO EVENT ONSET ON 21/MAR/2019?MOST ...
     Route: 048
     Dates: start: 20190214
  2. CAPECITABINE [Suspect]
     Active Substance: CAPECITABINE
     Indication: Triple negative breast cancer
     Route: 048
  3. CAPECITABINE [Suspect]
     Active Substance: CAPECITABINE
     Indication: Triple negative breast cancer
     Route: 048
  4. PLACEBO [Suspect]
     Active Substance: PLACEBO
     Indication: Triple negative breast cancer
     Dosage: MOST RECENT DOSE OF BLINDED ATEZOLIZUMAB PRIOR TO AE ONSET ON 07/MAR/2019?MOST RECENT DOSE OF BLI...
     Route: 042
     Dates: start: 20190214
  5. PLACEBO [Suspect]
     Active Substance: PLACEBO
     Indication: Triple negative breast cancer
     Route: 042
  6. METAMIZOLE [Concomitant]
     Active Substance: METAMIZOLE
     Dates: start: 20190519, end: 20190519
  7. VOLTAREN [Concomitant]
     Active Substance: DICLOFENAC SODIUM
     Dates: start: 20190519
  8. IBUPROFEN [Concomitant]
     Active Substance: IBUPROFEN
     Dates: start: 20190404, end: 20190404
  9. IBUPROFEN [Concomitant]
     Active Substance: IBUPROFEN
     Dates: start: 20190519
  10. TRAMADOL [Concomitant]
     Active Substance: TRAMADOL
     Dates: start: 20190520
  11. CLINDAMYCIN [Concomitant]
     Active Substance: CLINDAMYCIN
     Dates: start: 20190307, end: 20190314
  12. RANITIDINE [Concomitant]
     Active Substance: RANITIDINE
     Indication: Prophylaxis
     Dates: start: 20190328, end: 20190328
  13. RANITIDINE [Concomitant]
     Active Substance: RANITIDINE
     Indication: Prophylaxis
     Dates: start: 20190510, end: 20190510
  14. PREDNISOLONE SODIUM SUCCINATE [Concomitant]
     Active Substance: PREDNISOLONE SODIUM SUCCINATE
     Dates: start: 20190307, end: 20190307
  15. PREDNISOLONE SODIUM SUCCINATE [Concomitant]
     Active Substance: PREDNISOLONE SODIUM SUCCINATE
     Dates: start: 20190328, end: 20190328
  16. NOVALGIN [Concomitant]
     Dates: start: 20190519

REACTIONS (1)
  - Seroma [Recovered/Resolved]

NARRATIVE: CASE EVENT DATE: 20190307
